FAERS Safety Report 4591357-X (Version None)
Quarter: 2005Q1

REPORT INFORMATION
  Report Type: 
  Country: None (occurrence: None)
  Receive Date: 20050223
  Receipt Date: 20050223
  Transmission Date: 20050727
  Serious: No
  Sender: FDA-Public Use
  Company Number: None

PATIENT
  Age: 75 Year
  Sex: Male

DRUGS (1)
  1. GABAPENTIN [Suspect]
     Indication: PHANTOM PAIN
     Dosage: ONE CAPSULE TWICE DAILY

REACTIONS (4)
  - DISEASE RECURRENCE [None]
  - DRUG INEFFECTIVE [None]
  - PHANTOM PAIN [None]
  - PHARMACEUTICAL PRODUCT COMPLAINT [None]
